FAERS Safety Report 15421237 (Version 5)
Quarter: 2020Q1

REPORT INFORMATION
  Report Type: Report from Study
  Country: US (occurrence: US)
  Receive Date: 20180924
  Receipt Date: 20200131
  Transmission Date: 20200409
  Serious: Yes (Hospitalization)
  Sender: FDA-Public Use
  Company Number: US-ACTELION-A-NJ2018-179151

PATIENT
  Age: 52 Year
  Sex: Female

DRUGS (3)
  1. TRACLEER [Suspect]
     Active Substance: BOSENTAN
     Indication: PULMONARY ARTERIAL HYPERTENSION
     Dosage: 125 MG, BID
     Route: 048
     Dates: start: 20170225
  2. VELETRI [Suspect]
     Active Substance: EPOPROSTENOL
     Indication: PULMONARY ARTERIAL HYPERTENSION
     Dosage: 12.6 NG/KG, PER MIN
     Route: 042
     Dates: start: 201912
  3. VELETRI [Suspect]
     Active Substance: EPOPROSTENOL
     Dosage: 13 NG/KG, PER MIN
     Route: 042
     Dates: start: 20170215

REACTIONS (9)
  - Procedural hypotension [Unknown]
  - Large intestine polyp [Unknown]
  - Device connection issue [Recovered/Resolved]
  - Diarrhoea [Unknown]
  - Device occlusion [Recovered/Resolved]
  - Colonoscopy [Unknown]
  - Catheter management [Recovered/Resolved]
  - Device alarm issue [Unknown]
  - Abdominal pain [Unknown]

NARRATIVE: CASE EVENT DATE: 20180913
